FAERS Safety Report 5458323-3 (Version None)
Quarter: 2007Q3

REPORT INFORMATION
  Report Type: 
  Country: None (occurrence: None)
  Receive Date: 20070919
  Receipt Date: 20070105
  Transmission Date: 20080115
  Serious: No
  Sender: FDA-Public Use
  Company Number: US-BAUSCH-2007BL000043

PATIENT
  Age: 60 Year
  Sex: Male

DRUGS (5)
  1. PROPARACAINE HCL [Suspect]
     Indication: EYE LASER SURGERY
     Route: 047
     Dates: start: 20061204, end: 20061204
  2. FLUOROMETHOLONE [Suspect]
     Indication: EYE LASER SURGERY
     Route: 047
     Dates: start: 20061204, end: 20061204
  3. BALANCED SALT SOLUTION [Suspect]
     Indication: EYE LASER SURGERY
     Route: 047
     Dates: start: 20061204, end: 20061204
  4. VOLTAREN [Suspect]
     Indication: EYE LASER SURGERY
     Route: 047
     Dates: start: 20061204, end: 20061204
  5. ZYMAR [Suspect]
     Indication: EYE LASER SURGERY
     Route: 047
     Dates: start: 20061204, end: 20061204

REACTIONS (1)
  - KERATITIS [None]
